FAERS Safety Report 19831279 (Version 4)
Quarter: 2022Q4

REPORT INFORMATION
  Report Type: Other
  Country: JP (occurrence: JP)
  Receive Date: 20210915
  Receipt Date: 20221010
  Transmission Date: 20230113
  Serious: Yes (Hospitalization, Other)
  Sender: FDA-Public Use
  Company Number: JP-ROCHE-2909196

PATIENT
  Age: 32 Year
  Sex: Male
  Weight: 58 kg

DRUGS (15)
  1. MYCOPHENOLATE MOFETIL [Suspect]
     Active Substance: MYCOPHENOLATE MOFETIL
     Indication: Prophylaxis against transplant rejection
     Route: 048
     Dates: start: 20160623, end: 20160628
  2. MYCOPHENOLATE MOFETIL [Suspect]
     Active Substance: MYCOPHENOLATE MOFETIL
     Dosage: DATE OF LAST DOSE ADMINISTERED ON 19/JUL/2016
     Route: 048
     Dates: start: 20160629
  3. RITUXIMAB [Suspect]
     Active Substance: RITUXIMAB
     Indication: Prophylaxis against transplant rejection
     Dosage: DATE OF LAST DOSE ADMINISTRATION ON 09/JUN/2016
     Route: 041
     Dates: start: 20160609
  4. PROGRAF [Suspect]
     Active Substance: TACROLIMUS
     Indication: Prophylaxis against transplant rejection
     Dosage: DATE OF LAST DOSE ADMINISTERED ON 01/JUL/2016
     Route: 048
     Dates: start: 20160623
  5. PROGRAF [Suspect]
     Active Substance: TACROLIMUS
     Dosage: DATE OF LAST DOSE ADMINISTERED ON 4/JUL/2016
     Route: 048
     Dates: start: 20160702
  6. PROGRAF [Suspect]
     Active Substance: TACROLIMUS
     Dosage: DATE OF LAST DOSE ADMINISTERED ON 13/JUL/2016
     Route: 048
     Dates: start: 20160705
  7. PROGRAF [Suspect]
     Active Substance: TACROLIMUS
     Dosage: DATE OF LAST DOSE ADMINISTERED ON 02/AUG/2016
     Route: 048
     Dates: start: 20160714
  8. PROGRAF [Suspect]
     Active Substance: TACROLIMUS
     Dosage: DATE OF LAST DOSE ADMINISTERED ON 04/AUG/2016
     Route: 048
     Dates: start: 20160803
  9. PROGRAF [Suspect]
     Active Substance: TACROLIMUS
     Route: 048
     Dates: start: 20160805
  10. PREDONINE [Suspect]
     Active Substance: PREDNISOLONE
     Indication: Prophylaxis against transplant rejection
     Route: 048
     Dates: start: 20160630, end: 20160728
  11. PREDONINE [Suspect]
     Active Substance: PREDNISOLONE
     Route: 048
     Dates: start: 20160729, end: 20160825
  12. PREDONINE [Suspect]
     Active Substance: PREDNISOLONE
     Route: 048
     Dates: start: 20160826, end: 20161003
  13. PREDONINE [Suspect]
     Active Substance: PREDNISOLONE
     Route: 048
     Dates: start: 20161004
  14. FLUCONAZOLE [Concomitant]
     Active Substance: FLUCONAZOLE
     Indication: Infection prophylaxis
     Route: 048
     Dates: start: 20160906, end: 20161219
  15. MICAFUNGIN SODIUM [Concomitant]
     Active Substance: MICAFUNGIN SODIUM
     Indication: Infection prophylaxis
     Route: 042
     Dates: start: 20160623, end: 20160905

REACTIONS (5)
  - Ascites [Recovering/Resolving]
  - Blood culture positive [Recovered/Resolved]
  - Abdominal abscess [Recovered/Resolved]
  - Cytomegalovirus infection [Recovered/Resolved]
  - Clostridium difficile colitis [Recovered/Resolved]

NARRATIVE: CASE EVENT DATE: 20160623
